FAERS Safety Report 15613384 (Version 2)
Quarter: 2018Q4

REPORT INFORMATION
  Report Type: Spontaneous
  Country: US (occurrence: US)
  Receive Date: 20181113
  Receipt Date: 20181219
  Transmission Date: 20190205
  Serious: Yes (Other)
  Sender: FDA-Public Use
  Company Number: US-BAYER-2018-205929

PATIENT
  Age: 22 Year
  Sex: Female
  Weight: 121 kg

DRUGS (2)
  1. MIRENA [Suspect]
     Active Substance: LEVONORGESTREL
     Indication: CONTRACEPTION
     Dosage: 20 MCG/24HR, CONT
     Route: 015
     Dates: start: 201612, end: 20181101
  2. MIRENA [Suspect]
     Active Substance: LEVONORGESTREL
     Indication: CONTRACEPTION

REACTIONS (6)
  - Complication of device removal [Recovered/Resolved]
  - Uterine perforation [Recovered/Resolved]
  - Complication of device removal [Not Recovered/Not Resolved]
  - Dyspareunia [Recovered/Resolved]
  - Pelvic pain [Recovered/Resolved]
  - Genital haemorrhage [Recovered/Resolved]

NARRATIVE: CASE EVENT DATE: 20181031
